FAERS Safety Report 9103903 (Version 2)
Quarter: 2013Q3

REPORT INFORMATION
  Report Type: Spontaneous
  Country: FR (occurrence: FR)
  Receive Date: 20130219
  Receipt Date: 20130705
  Transmission Date: 20140515
  Serious: No
  Sender: FDA-Public Use
  Company Number: FR-PFIZER INC-2013059566

PATIENT
  Age: 74 Year
  Sex: Female
  Weight: 65 kg

DRUGS (2)
  1. EFFEXOR LP [Suspect]
     Indication: DEPRESSION
     Dosage: 75 MG, 1X/DAY
     Dates: start: 2005
  2. DEPAMIDE [Concomitant]
     Indication: AFFECTIVE DISORDER
     Dosage: 300 MG, 2X/DAY
     Dates: start: 2005

REACTIONS (1)
  - Intraocular pressure increased [Unknown]
